FAERS Safety Report 12624655 (Version 1)
Quarter: 2016Q3

REPORT INFORMATION
  Report Type: Spontaneous
  Country: JP (occurrence: JP)
  Receive Date: 20160805
  Receipt Date: 20160805
  Transmission Date: 20161109
  Serious: Yes (Other)
  Sender: FDA-Public Use
  Company Number: JP-PFIZER INC-2016357494

PATIENT
  Sex: Male

DRUGS (2)
  1. CARDENALIN [Suspect]
     Active Substance: DOXAZOSIN MESYLATE
     Indication: HYPERTENSION
     Dosage: 1 MG, 1X/DAY
     Route: 048
     Dates: start: 2008
  2. CARDENALIN [Suspect]
     Active Substance: DOXAZOSIN MESYLATE
     Dosage: 2 MG, 1X/DAY
     Route: 048
     Dates: start: 2010, end: 201510

REACTIONS (4)
  - Urinary bladder haemorrhage [Unknown]
  - Urinary retention [Recovered/Resolved]
  - Thrombosis [Unknown]
  - Urethral stenosis [Unknown]

NARRATIVE: CASE EVENT DATE: 2013
